FAERS Safety Report 6745934-8 (Version None)
Quarter: 2010Q2

REPORT INFORMATION
  Report Type: 
  Country: None (occurrence: None)
  Receive Date: 20100528
  Receipt Date: 20100514
  Transmission Date: 20101027
  Serious: Yes (Hospitalization, Other)
  Sender: FDA-Public Use
  Company Number: US-ELI_LILLY_AND_COMPANY-US200906003793

PATIENT
  Sex: Female

DRUGS (18)
  1. FORTEO [Suspect]
     Indication: OSTEOPOROSIS
     Dosage: UNK, UNK
  2. FORTEO [Suspect]
     Dosage: UNK, UNK
  3. AMBIEN [Concomitant]
     Dosage: 1 TABLET
  4. PAMELOR [Concomitant]
     Dosage: 2 TABLETS, EACH EVENING
  5. VALIUM [Concomitant]
     Dosage: UNK, 3/D
  6. COUMADIN [Concomitant]
     Dosage: 1 TABLET, EACH EVENING
  7. LASIX [Concomitant]
     Dosage: 40 MG, 2/D
  8. ZOCOR [Concomitant]
     Dosage: 2 TABLETS
  9. VESICARE [Concomitant]
     Dosage: 1 TABLET EACH NIGHT
  10. MACRODANTIN [Concomitant]
     Dosage: 1 TABLET
  11. EFFEXOR [Concomitant]
     Dosage: 150 MG, EACH MORNING
  12. ZESTRIL [Concomitant]
     Dosage: 1 TABLET
  13. ALDACTONE [Concomitant]
     Dosage: 1 TABLET, EACH MORNING
  14. PRILOSEC [Concomitant]
     Dosage: 1 TABLET EVERY MORNING BEFORE EATING
  15. PRILOSEC [Concomitant]
     Dosage: 1 TABLET EACH EVENING BEFORE EATING
  16. IRON [Concomitant]
     Dosage: 1 TABLET, DAILY (1/D)
  17. POTASSIUM [Concomitant]
     Dosage: 1 TABLET
  18. PROTEIN SUPPLEMENTS [Concomitant]
     Dosage: UNK, 2/D

REACTIONS (10)
  - BALANCE DISORDER [None]
  - BLOOD POTASSIUM INCREASED [None]
  - FALL [None]
  - HEAD INJURY [None]
  - HYPOPHAGIA [None]
  - HYPOTENSION [None]
  - INJECTION SITE HAEMORRHAGE [None]
  - INTENTIONAL DRUG MISUSE [None]
  - LOSS OF CONSCIOUSNESS [None]
  - MEMORY IMPAIRMENT [None]
